FAERS Safety Report 9231839 (Version 1)
Quarter: 2013Q2

REPORT INFORMATION
  Report Type: Spontaneous
  Country: US (occurrence: US)
  Receive Date: 20130415
  Receipt Date: 20130415
  Transmission Date: 20140414
  Serious: No
  Sender: FDA-Public Use
  Company Number: US-PFIZER INC-2013116708

PATIENT
  Age: 53 Year
  Sex: Female
  Weight: 86.17 kg

DRUGS (5)
  1. CHANTIX [Suspect]
     Indication: SMOKING CESSATION THERAPY
     Dosage: UNK
     Route: 048
     Dates: start: 2011
  2. LEVOXYL [Concomitant]
     Indication: HYPOTHYROIDISM
     Dosage: UNK
  3. CYTOMEL [Concomitant]
     Indication: HYPOTHYROIDISM
     Dosage: UNK
  4. METFORMIN [Concomitant]
     Indication: BLOOD GLUCOSE INCREASED
     Dosage: UNK
  5. KLONOPIN [Concomitant]
     Indication: ANXIETY
     Dosage: UNK

REACTIONS (1)
  - Drug ineffective [Unknown]
